FAERS Safety Report 19435314 (Version 2)
Quarter: 2021Q2

REPORT INFORMATION
  Report Type: Report from Study
  Country: US (occurrence: US)
  Receive Date: 20210617
  Receipt Date: 20210630
  Transmission Date: 20210717
  Serious: Yes (Hospitalization, Other)
  Sender: FDA-Public Use
  Company Number: US-BRISTOL-MYERS SQUIBB COMPANY-BMS-2021-007663

PATIENT
  Age: 44 Year
  Sex: Female
  Weight: 70 kg

DRUGS (6)
  1. IMITREX [Concomitant]
     Active Substance: SUMATRIPTAN SUCCINATE
     Indication: PRODUCT USED FOR UNKNOWN INDICATION
     Dosage: 100 MILLIGRAM
     Route: 048
     Dates: start: 20190312
  2. MOTRIN [Concomitant]
     Active Substance: IBUPROFEN
     Indication: PRODUCT USED FOR UNKNOWN INDICATION
     Dosage: 200 MILLIGRAM
     Route: 048
     Dates: start: 20180823
  3. NIVOLUMAB [Suspect]
     Active Substance: NIVOLUMAB
     Indication: COLORECTAL CANCER
     Dosage: 480 MILLIGRAM
     Route: 042
     Dates: start: 20180531
  4. BMS?813160 [Suspect]
     Active Substance: INVESTIGATIONAL PRODUCT
     Indication: COLORECTAL CANCER
     Dosage: 300 MILLIGRAM, BID
     Route: 065
     Dates: start: 20180531
  5. ATIVAN [Concomitant]
     Active Substance: LORAZEPAM
     Indication: PRODUCT USED FOR UNKNOWN INDICATION
     Dosage: 0.5 MILLIGRAM
     Route: 048
     Dates: start: 20200225
  6. SYNTHROID [Concomitant]
     Active Substance: LEVOTHYROXINE SODIUM
     Indication: PRODUCT USED FOR UNKNOWN INDICATION
     Dosage: 1 DOSAGE FORM = 25 UNIT NOS
     Route: 048
     Dates: start: 20180920

REACTIONS (1)
  - Histiocytic necrotising lymphadenitis [Recovered/Resolved]

NARRATIVE: CASE EVENT DATE: 20210123
